FAERS Safety Report 19638581 (Version 54)
Quarter: 2025Q2

REPORT INFORMATION
  Report Type: Report from Study
  Country: US (occurrence: US)
  Receive Date: 20210730
  Receipt Date: 20250501
  Transmission Date: 20250717
  Serious: Yes (Other)
  Sender: TAKEDA
  Company Number: US-TAKEDA-US202013428

PATIENT
  Age: 46 Year
  Sex: Female

DRUGS (12)
  1. LANADELUMAB [Suspect]
     Active Substance: LANADELUMAB
     Indication: Immune system disorder
     Dosage: UNK UNK, Q2WEEKS
     Dates: start: 20140708
  2. LANADELUMAB [Suspect]
     Active Substance: LANADELUMAB
     Dosage: 300 MILLIGRAM, Q2WEEKS
     Dates: start: 20181112
  3. LANADELUMAB [Suspect]
     Active Substance: LANADELUMAB
     Dosage: 300 MILLIGRAM, Q2WEEKS
     Dates: start: 20181113
  4. LANADELUMAB [Suspect]
     Active Substance: LANADELUMAB
     Dosage: 300 MILLIGRAM, Q2WEEKS
     Dates: start: 20181114
  5. LANADELUMAB [Suspect]
     Active Substance: LANADELUMAB
     Dosage: 300 MILLIGRAM, Q2WEEKS
     Dates: start: 201811
  6. FIRAZYR [Suspect]
     Active Substance: ICATIBANT ACETATE
     Indication: Hereditary angioedema
  7. FIRAZYR [Suspect]
     Active Substance: ICATIBANT ACETATE
     Indication: Immune system disorder
  8. EPINEPHRINE [Concomitant]
     Active Substance: EPINEPHRINE
  9. HEPARIN [Concomitant]
     Active Substance: HEPARIN SODIUM
  10. STERILE WATER [Concomitant]
     Active Substance: WATER
  11. DUPIXENT [Concomitant]
     Active Substance: DUPILUMAB
  12. RUCONEST [Concomitant]
     Active Substance: CONESTAT ALFA

REACTIONS (2)
  - Hereditary angioedema [Recovered/Resolved]
  - Weight decreased [Unknown]

NARRATIVE: CASE EVENT DATE: 20200405
